FAERS Safety Report 15193232 (Version 2)
Quarter: 2018Q3

REPORT INFORMATION
  Report Type: Report from Study
  Country: BR (occurrence: BR)
  Receive Date: 20180725
  Receipt Date: 20180813
  Transmission Date: 20181010
  Serious: Yes (Other)
  Sender: FDA-Public Use
  Company Number: BR-ROCHE-2157252

PATIENT
  Age: 8 Year
  Sex: Female
  Weight: 29 kg

DRUGS (8)
  1. XOLAIR [Suspect]
     Active Substance: OMALIZUMAB
     Indication: ASTHMA
     Dosage: 150 MG, QMO
     Route: 058
     Dates: start: 201712
  2. XOLAIR [Suspect]
     Active Substance: OMALIZUMAB
     Dosage: 150 MG, QMO (1 AMPOULE)
     Route: 058
     Dates: start: 20180326
  3. XOLAIR [Suspect]
     Active Substance: OMALIZUMAB
     Dosage: UNK
     Route: 058
     Dates: start: 20180621
  4. XOLAIR [Suspect]
     Active Substance: OMALIZUMAB
     Route: 058
     Dates: start: 20171130
  5. SERETIDE [Concomitant]
     Active Substance: FLUTICASONE PROPIONATE\SALMETEROL XINAFOATE
     Dosage: 1 DF (25/250 UG), QD
     Route: 055
  6. BUSONID [Concomitant]
     Active Substance: BUDESONIDE
     Indication: RHINITIS
     Dosage: 50 UG, QD
     Route: 045
  7. BUSONID [Concomitant]
     Active Substance: BUDESONIDE
     Indication: ASTHMA
     Dosage: SINCE 3 YEARS OLD
     Route: 065
  8. SERETIDE [Concomitant]
     Active Substance: FLUTICASONE PROPIONATE\SALMETEROL XINAFOATE
     Indication: ASTHMA
     Dosage: SINCE 4 YEARS OLD
     Route: 065

REACTIONS (12)
  - Sinusitis [Recovered/Resolved]
  - Chest discomfort [Recovered/Resolved]
  - Wheezing [Unknown]
  - Cough [Not Recovered/Not Resolved]
  - Bronchitis [Recovered/Resolved]
  - Bronchospasm [Recovered/Resolved]
  - Asthmatic crisis [Not Recovered/Not Resolved]
  - Sensitivity to weather change [Unknown]
  - Fatigue [Recovered/Resolved]
  - Dyspnoea [Recovered/Resolved]
  - Asthma [Recovered/Resolved]
  - Cough [Recovered/Resolved]

NARRATIVE: CASE EVENT DATE: 201803
